FAERS Safety Report 14473817 (Version 35)
Quarter: 2025Q2

REPORT INFORMATION
  Report Type: Spontaneous
  Country: US (occurrence: US)
  Receive Date: 20180201
  Receipt Date: 20250529
  Transmission Date: 20250717
  Serious: Yes (Other)
  Sender: PFIZER
  Company Number: US-PFIZER INC-2018041621

PATIENT
  Age: 68 Year
  Sex: Female
  Weight: 49 kg

DRUGS (14)
  1. XELJANZ [Suspect]
     Active Substance: TOFACITINIB CITRATE
     Indication: Rheumatoid arthritis
     Dosage: 5 MG, 2X/DAY
     Route: 048
     Dates: start: 2017
  2. XELJANZ [Suspect]
     Active Substance: TOFACITINIB CITRATE
     Dosage: 5 MG, 1X/DAY (FOR ABOUT A WEEK)
     Route: 048
     Dates: start: 20180123, end: 2018
  3. XELJANZ [Suspect]
     Active Substance: TOFACITINIB CITRATE
     Dosage: 20 MG, DAILY (2, 10MG A DAY)
     Route: 048
  4. XELJANZ [Suspect]
     Active Substance: TOFACITINIB CITRATE
     Dosage: 10 MG, 2X/DAY
     Route: 048
  5. XELJANZ [Suspect]
     Active Substance: TOFACITINIB CITRATE
     Dates: start: 2018
  6. LORAZEPAM [Concomitant]
     Active Substance: LORAZEPAM
     Indication: Anxiety
  7. LORAZEPAM [Concomitant]
     Active Substance: LORAZEPAM
     Indication: Post-traumatic stress disorder
  8. ACETAMINOPHEN [Concomitant]
     Active Substance: ACETAMINOPHEN
  9. OXYCODONE [Concomitant]
     Active Substance: OXYCODONE
  10. MELOXICAM [Concomitant]
     Active Substance: MELOXICAM
  11. ASPIRIN [Concomitant]
     Active Substance: ASPIRIN
  12. GABAPENTIN [Concomitant]
     Active Substance: GABAPENTIN
  13. TYLENOL [Concomitant]
     Active Substance: ACETAMINOPHEN
  14. FELODIPINE [Concomitant]
     Active Substance: FELODIPINE

REACTIONS (29)
  - Knee arthroplasty [Unknown]
  - Knee operation [Unknown]
  - Myocardial infarction [Unknown]
  - Therapeutic response unexpected [Unknown]
  - Product dose omission in error [Unknown]
  - Intentional product misuse [Unknown]
  - Off label use [Unknown]
  - Influenza [Recovered/Resolved]
  - Respiratory tract infection [Recovered/Resolved]
  - Vomiting [Unknown]
  - Lymphadenopathy [Recovered/Resolved]
  - Malaise [Unknown]
  - Condition aggravated [Recovered/Resolved]
  - Arthropathy [Recovered/Resolved]
  - Dyspnoea [Unknown]
  - Gait disturbance [Recovered/Resolved]
  - Illness [Not Recovered/Not Resolved]
  - Nasopharyngitis [Unknown]
  - Pain [Recovered/Resolved]
  - Pruritus [Recovered/Resolved]
  - Urticaria [Recovered/Resolved]
  - Viral infection [Recovered/Resolved]
  - Weight decreased [Recovered/Resolved]
  - Feeding disorder [Unknown]
  - Panic reaction [Not Recovered/Not Resolved]
  - Nervousness [Not Recovered/Not Resolved]
  - Seasonal allergy [Unknown]
  - Abdominal discomfort [Unknown]
  - Nasal congestion [Unknown]

NARRATIVE: CASE EVENT DATE: 20170101
